FAERS Safety Report 13861669 (Version 2)
Quarter: 2017Q3

REPORT INFORMATION
  Report Type: Report from Study
  Country: US (occurrence: US)
  Receive Date: 20170811
  Receipt Date: 20170829
  Transmission Date: 20171127
  Serious: Yes (Other)
  Sender: FDA-Public Use
  Company Number: US-JAZZ-2017-US-010230

PATIENT
  Sex: Female

DRUGS (4)
  1. XYREM [Suspect]
     Active Substance: SODIUM OXYBATE
     Dosage: 3.5 G, QD
     Route: 048
     Dates: start: 201403
  2. XYREM [Suspect]
     Active Substance: SODIUM OXYBATE
     Dosage: 3 G, QD
     Route: 048
     Dates: start: 201403
  3. XYREM [Suspect]
     Active Substance: SODIUM OXYBATE
     Dosage: DOSE ADJUSTMENTS
     Route: 048
     Dates: start: 200710, end: 201402
  4. XYREM [Suspect]
     Active Substance: SODIUM OXYBATE
     Indication: NARCOLEPSY
     Dosage: 2.25 G, BID
     Route: 048
     Dates: start: 200706, end: 200709

REACTIONS (1)
  - Meningioma [Unknown]
